FAERS Safety Report 17908075 (Version 2)
Quarter: 2020Q3

REPORT INFORMATION
  Report Type: Report from Study
  Country: US (occurrence: US)
  Receive Date: 20200617
  Receipt Date: 20200709
  Transmission Date: 20201103
  Serious: No
  Sender: FDA-Public Use
  Company Number: US-SA-2020SA150895

PATIENT

DRUGS (7)
  1. CLOBETASOL [CLOBETASOL PROPIONATE] [Concomitant]
  2. PIMECROLIMUS. [Concomitant]
     Active Substance: PIMECROLIMUS
  3. VIAGRA [SILDENAFIL] [Concomitant]
  4. TRIAMCINOLONE ACETONIDE. [Concomitant]
     Active Substance: TRIAMCINOLONE ACETONIDE
  5. ALEVE [Concomitant]
     Active Substance: NAPROXEN SODIUM
  6. DUPILUMAB [Suspect]
     Active Substance: DUPILUMAB
     Indication: DERMATITIS ATOPIC
     Dosage: 600 MG, 1X
     Route: 058
     Dates: start: 202005, end: 202005
  7. DUPILUMAB [Suspect]
     Active Substance: DUPILUMAB
     Dosage: 300 MG, QOW
     Route: 058
     Dates: start: 2020

REACTIONS (9)
  - Skin burning sensation [Unknown]
  - Condition aggravated [Unknown]
  - Scratch [Unknown]
  - Tongue disorder [Not Recovered/Not Resolved]
  - Tongue discolouration [Not Recovered/Not Resolved]
  - Chromaturia [Unknown]
  - Rash pruritic [Unknown]
  - Skin swelling [Unknown]
  - Erythema [Unknown]

NARRATIVE: CASE EVENT DATE: 2020
